FAERS Safety Report 14481555 (Version 3)
Quarter: 2018Q1

REPORT INFORMATION
  Report Type: Report from Study
  Country: US (occurrence: US)
  Receive Date: 20180202
  Receipt Date: 20180319
  Transmission Date: 20180509
  Serious: Yes (Other)
  Sender: FDA-Public Use
  Company Number: US-BAYER-2017-142390

PATIENT
  Age: 70 Year
  Sex: Male

DRUGS (9)
  1. STIVARGA [Suspect]
     Active Substance: REGORAFENIB
     Indication: COLON CANCER
     Dosage: 40 MG, 1 TAB EVERY OTHER DAY ALT WITH 2 TABS
     Route: 048
     Dates: start: 20170808
  2. STIVARGA [Suspect]
     Active Substance: REGORAFENIB
     Indication: COLON CANCER
     Dosage: 80 MG, QD
     Dates: start: 20171009, end: 201710
  3. STIVARGA [Suspect]
     Active Substance: REGORAFENIB
     Indication: COLON CANCER
     Dosage: ALTERNATED OUT BETWEEN 1 DAILY AND 2 DAILY
     Dates: start: 201710
  4. STIVARGA [Suspect]
     Active Substance: REGORAFENIB
     Indication: COLON CANCER
     Dosage: UNK, (40 MG EVERY DAY)
     Route: 048
     Dates: start: 2017, end: 2017
  5. STIVARGA [Suspect]
     Active Substance: REGORAFENIB
     Indication: COLON CANCER
     Dosage: DAILY DOSE 80 MG
     Dates: start: 201802, end: 20180227
  6. STIVARGA [Suspect]
     Active Substance: REGORAFENIB
     Indication: COLON CANCER
     Dosage: 40 MG, QD
     Route: 048
     Dates: start: 20170708, end: 20170727
  7. STIVARGA [Suspect]
     Active Substance: REGORAFENIB
     Indication: COLON CANCER
     Dosage: 40 MG EVERY OTHER DAY)
     Route: 048
     Dates: start: 2017, end: 2017
  8. STIVARGA [Suspect]
     Active Substance: REGORAFENIB
     Indication: COLON CANCER
     Dosage: DAILY DOSE 160 MG
     Route: 048
     Dates: start: 2017
  9. STIVARGA [Suspect]
     Active Substance: REGORAFENIB
     Indication: COLON CANCER
     Dosage: TAKE 1 TABLET EVERY OTHER DAY ALTERNATING WITH 2 TABLETS EVERY OTHER DAY, NO REST PERIOD.
     Route: 048
     Dates: end: 201802

REACTIONS (23)
  - Carcinoembryonic antigen increased [Recovering/Resolving]
  - Dysphonia [Not Recovered/Not Resolved]
  - Blood pressure increased [Not Recovered/Not Resolved]
  - Fatigue [Not Recovered/Not Resolved]
  - Swollen tongue [None]
  - Oral pain [Not Recovered/Not Resolved]
  - Dysphonia [Not Recovered/Not Resolved]
  - Colon cancer [None]
  - Adverse drug reaction [None]
  - Carcinoembryonic antigen increased [None]
  - Oropharyngeal pain [Not Recovered/Not Resolved]
  - Gingival pain [Not Recovered/Not Resolved]
  - Dysphagia [None]
  - Off label use [None]
  - Palmar-plantar erythrodysaesthesia syndrome [Not Recovered/Not Resolved]
  - Blood pressure increased [Not Recovered/Not Resolved]
  - Dyspnoea exertional [Not Recovered/Not Resolved]
  - Adverse drug reaction [None]
  - Pain in extremity [Not Recovered/Not Resolved]
  - Glossodynia [Not Recovered/Not Resolved]
  - Eating disorder [Not Recovered/Not Resolved]
  - Hyperkeratosis [Not Recovered/Not Resolved]
  - Pain [Not Recovered/Not Resolved]

NARRATIVE: CASE EVENT DATE: 2017
